FAERS Safety Report 14790592 (Version 1)
Quarter: 2018Q2

REPORT INFORMATION
  Report Type: Spontaneous
  Country: GB (occurrence: GB)
  Receive Date: 20180423
  Receipt Date: 20180423
  Transmission Date: 20180711
  Serious: Yes (Hospitalization)
  Sender: FDA-Public Use
  Company Number: GB-SA-2017SA268845

PATIENT
  Age: 59 Year
  Sex: Male

DRUGS (6)
  1. MYCOPHENOLATE MOFETIL. [Suspect]
     Active Substance: MYCOPHENOLATE MOFETIL
     Indication: RENAL TRANSPLANT
     Route: 065
  2. PREDNISOLONE. [Suspect]
     Active Substance: PREDNISOLONE
     Indication: RENAL TRANSPLANT
     Route: 065
  3. CLINDAMYCIN. [Concomitant]
     Active Substance: CLINDAMYCIN
     Indication: PNEUMOCYSTIS JIROVECII PNEUMONIA
     Route: 065
  4. TRIMETHOPRIM/SULFAMETHOXAZOLE [Suspect]
     Active Substance: SULFAMETHOXAZOLE\TRIMETHOPRIM
     Indication: PNEUMOCYSTIS JIROVECII PNEUMONIA
     Route: 065
  5. PRIMAQUINE [Suspect]
     Active Substance: PRIMAQUINE PHOSPHATE
     Indication: PNEUMOCYSTIS JIROVECII PNEUMONIA
     Route: 065
  6. ENVARSUS XR [Suspect]
     Active Substance: TACROLIMUS
     Indication: RENAL TRANSPLANT
     Dosage: PROLONGED-RELEASE TABLET
     Route: 065

REACTIONS (10)
  - Methaemoglobinaemia [Recovering/Resolving]
  - PO2 increased [Recovering/Resolving]
  - PCO2 decreased [Recovering/Resolving]
  - Dyspnoea [Recovering/Resolving]
  - Cyanosis [Recovering/Resolving]
  - Hyperkalaemia [Recovering/Resolving]
  - Hypotension [Recovering/Resolving]
  - Hypoxia [Recovering/Resolving]
  - Blood creatinine increased [Recovering/Resolving]
  - Pneumocystis jirovecii pneumonia [Recovering/Resolving]
